FAERS Safety Report 11437775 (Version 1)
Quarter: 2015Q3

REPORT INFORMATION
  Report Type: Spontaneous
  Country: US (occurrence: US)
  Receive Date: 20150831
  Receipt Date: 20150831
  Transmission Date: 20151125
  Serious: No
  Sender: FDA-Public Use
  Company Number: ALCN2015US005447

PATIENT
  Sex: Male

DRUGS (1)
  1. SYSTANE ULTRA [Suspect]
     Active Substance: POLYETHYLENE GLYCOL 400\PROPYLENE GLYCOL
     Indication: BLEPHARITIS
     Dosage: UNK
     Route: 047

REACTIONS (3)
  - Eye irritation [Recovered/Resolved]
  - Eye pain [Recovered/Resolved]
  - Off label use [Unknown]
